FAERS Safety Report 17214308 (Version 1)
Quarter: 2019Q4

REPORT INFORMATION
  Report Type: Spontaneous
  Country: CN (occurrence: CN)
  Receive Date: 20191230
  Receipt Date: 20191230
  Transmission Date: 20200122
  Serious: Yes (Other)
  Sender: FDA-Public Use
  Company Number: CN-PFIZER INC-2019552945

PATIENT
  Age: 47 Year
  Sex: Female

DRUGS (2)
  1. SODIUM CHLORIDE. [Concomitant]
     Active Substance: SODIUM CHLORIDE
     Dosage: 100 ML, 1X/DAY
     Route: 041
     Dates: start: 20171009, end: 20171009
  2. PACLITAXEL. [Suspect]
     Active Substance: PACLITAXEL
     Indication: PROPHYLAXIS
     Dosage: 30 MG, 1X/DAY
     Route: 041
     Dates: start: 20171009, end: 20171009

REACTIONS (6)
  - Chills [Recovered/Resolved]
  - Reaction to excipient [Recovered/Resolved]
  - Dyspnoea [Recovered/Resolved]
  - Off label use [Unknown]
  - Cyanosis [Recovered/Resolved]
  - Product use in unapproved indication [Unknown]

NARRATIVE: CASE EVENT DATE: 20171009
